FAERS Safety Report 5309920-7 (Version None)
Quarter: 2007Q2

REPORT INFORMATION
  Report Type: 
  Country: None (occurrence: None)
  Receive Date: 20070427
  Receipt Date: 20070413
  Transmission Date: 20071010
  Serious: Yes (Other)
  Sender: FDA-Public Use
  Company Number: JP-ROCHE-490361

PATIENT
  Age: 51 Year
  Sex: Female
  Weight: 54 kg

DRUGS (2)
  1. TAMIFLU [Suspect]
     Route: 048
     Dates: start: 20070323, end: 20070324
  2. COCARL [Concomitant]
     Route: 048
     Dates: start: 20070323

REACTIONS (2)
  - AUTONOMIC NERVOUS SYSTEM IMBALANCE [None]
  - DEPRESSED LEVEL OF CONSCIOUSNESS [None]
